FAERS Safety Report 6393190-5 (Version None)
Quarter: 2009Q4

REPORT INFORMATION
  Report Type: 
  Country: None (occurrence: None)
  Receive Date: 20091008
  Receipt Date: 20091001
  Transmission Date: 20100525
  Serious: Yes (Other)
  Sender: FDA-Public Use
  Company Number: BR-BRISTOL-MYERS SQUIBB COMPANY-14805980

PATIENT
  Age: 68 Year
  Sex: Male
  Weight: 66 kg

DRUGS (25)
  1. APROVEL TABS 150 MG [Suspect]
     Indication: HYPERTENSION
     Dosage: STARTED 3 TO 4 YEARS AGO
     Route: 048
  2. AMARYL [Concomitant]
     Indication: BLOOD GLUCOSE
     Dosage: 1 TABS IN THE MORNING; STARTED 4 TO 5 YEARS AGO;
     Route: 048
  3. ASPIRIN [Concomitant]
     Indication: BLOOD VISCOSITY INCREASED
     Dosage: ASPIRINA PREVENT;1 TAB AFTER LUNCH;
     Route: 048
     Dates: start: 19980101
  4. AMLODIPINE BESYLATE [Concomitant]
     Indication: BLOOD PRESSURE MANAGEMENT
     Dosage: 1 TABS; STARTED 3 TO 4 YEARS AGO;
     Route: 048
  5. CARBAMAZEPINE [Concomitant]
     Indication: PAIN
     Dosage: 1 DF - 1TABS
     Route: 048
     Dates: start: 20090928
  6. CITONEURIN [Concomitant]
     Dosage: CITONEURIN 5000;1 DF - 1TABS AFTER LUNH;2WEEKS;
     Route: 048
     Dates: start: 20090817
  7. CARMELLOSE SODIUM [Concomitant]
     Indication: DRY EYE
     Dosage: FORM EYE DROPS;ROUT OPHTHALMOLOGIC
     Dates: start: 20090903
  8. GARLIC [Concomitant]
     Indication: INFLUENZA
     Dosage: GARLIC OIL CAP;1 DF - 1CAPS  IN THE MOR;STARTED 10YEARS AGO
     Route: 048
  9. DEXTRAN 70 + HYPROMELLOSE [Concomitant]
     Indication: DRY EYE
     Dosage: FORM EYE DROPS;ROUT OPHTHALMOLOGIC
     Dates: start: 20090928, end: 20090901
  10. FLUOXETINE [Concomitant]
     Indication: DEPRESSION
     Dosage: 1 DF - 1TABS AFTER LUNCH;STARTED 8 TO 9 YEARS
     Route: 048
  11. GLIFAGE [Concomitant]
     Indication: DIABETES MELLITUS MANAGEMENT
     Dosage: 1 TABS IN THE MORNING PLUS 1 TABS AT NIGHT;APP 7 OR 8 YEARS AGO;
     Route: 048
  12. LIPLESS [Concomitant]
     Indication: BLOOD TRIGLYCERIDES
     Dosage: 1 TABS AFTER DINNER;STARTED APP 7 OR 8YEARS AGO;
     Route: 048
  13. CLOPIDOGREL BISULFATE [Concomitant]
     Dosage: TABS;STARTED APPROX 2-3 YRS
     Route: 048
  14. CYCLOBENZAPRINE HCL [Concomitant]
     Indication: NECK PAIN
     Dosage: 1 DF = 1 TABS STARTED AND STOPPED APPROX 2 OR 3 WEEKS AGO
     Route: 048
  15. OMEPRAZOLE [Concomitant]
     Indication: PROPHYLAXIS
     Dosage: TAB STARTED 8 YRS AGO
     Route: 048
  16. FAMCICLOVIR [Concomitant]
     Indication: HERPES ZOSTER
     Dosage: 1 DF = 1 TABS
     Route: 048
     Dates: start: 20090827, end: 20090901
  17. PREDNISONE TAB [Concomitant]
     Indication: PAIN
     Dosage: 3 DF = 3 TAB AFETR BFKFAST
     Route: 048
     Dates: start: 20090828
  18. PURAN T4 [Concomitant]
     Indication: HYPOTHYROIDISM
     Dosage: 1 TAB IN MORNING STARTED 4-5 YRS AGO
     Route: 048
  19. SIMVASTATIN [Concomitant]
     Indication: BLOOD CHOLESTEROL DECREASED
     Dosage: 1 TAB AT NIGHT
     Route: 048
  20. TANDRILAX [Concomitant]
     Indication: INFLAMMATION
     Dosage: 1 DF = 1-2 TAB STARTED 3 OR 4 WEEKS AGO
     Route: 048
  21. TYLEX [Concomitant]
     Indication: PAIN
     Dosage: 1 DF - 1TABS
     Route: 048
     Dates: start: 20090826, end: 20090828
  22. VASTAREL [Concomitant]
     Indication: HYPERTENSIVE CRISIS
     Dosage: 1 TABS IN THE MORNING
     Route: 048
  23. CEPACOL [Concomitant]
     Dosage: STOPPED 2WEEKS AGO
     Route: 048
     Dates: start: 20090827
  24. NOVALGINA [Concomitant]
     Indication: PAIN
     Dosage: 40DF - 40DROPS
     Route: 048
  25. EPITEZAN [Concomitant]
     Route: 047
     Dates: start: 20090828

REACTIONS (2)
  - HERPES ZOSTER [None]
  - MEMORY IMPAIRMENT [None]
